FAERS Safety Report 11995858 (Version 1)
Quarter: 2016Q1

REPORT INFORMATION
  Report Type: Spontaneous
  Country: US (occurrence: US)
  Receive Date: 20160203
  Receipt Date: 20160203
  Transmission Date: 20160526
  Serious: No
  Sender: FDA-Public Use
  Company Number: US-DSJP-DSU-2015-110325

PATIENT
  Sex: Male

DRUGS (2)
  1. EVOXAC AG [Suspect]
     Active Substance: CEVIMELINE HYDROCHLORIDE
     Indication: SJOGREN^S SYNDROME
     Dosage: UNK
     Route: 048
     Dates: start: 2014, end: 201502
  2. CEVIMELINE HCL [Suspect]
     Active Substance: CEVIMELINE HYDROCHLORIDE
     Indication: SJOGREN^S SYNDROME
     Dosage: UNK
     Route: 048
     Dates: start: 201502

REACTIONS (5)
  - Malaise [Unknown]
  - Dry throat [Unknown]
  - Dry mouth [Unknown]
  - Tongue dry [Unknown]
  - Middle insomnia [None]

NARRATIVE: CASE EVENT DATE: 2014
